FAERS Safety Report 9304015 (Version 1)
Quarter: 2013Q2

REPORT INFORMATION
  Report Type: Spontaneous
  Country: GB (occurrence: GB)
  Receive Date: 20130522
  Receipt Date: 20130522
  Transmission Date: 20140414
  Serious: Yes (Other)
  Sender: FDA-Public Use
  Company Number: PHHY2013GB049422

PATIENT
  Sex: Female

DRUGS (3)
  1. CO-CODAMOL [Suspect]
  2. WARFARIN [Suspect]
  3. FUROSEMIDE [Suspect]

REACTIONS (1)
  - Feeling abnormal [Unknown]
